FAERS Safety Report 5949511-8 (Version None)
Quarter: 2008Q4

REPORT INFORMATION
  Report Type: 
  Country: None (occurrence: None)
  Receive Date: 20081112
  Receipt Date: 20081105
  Transmission Date: 20090506
  Serious: Yes (Other)
  Sender: FDA-Public Use
  Company Number: PHBS2008NO06229

PATIENT
  Sex: Female

DRUGS (4)
  1. OXCARBAZEPINE [Suspect]
     Indication: EPILEPSY
     Dosage: 1800 MG/DAY
     Route: 065
  2. OXCARBAZEPINE [Suspect]
     Dosage: 2100 MG/DAY
     Route: 065
  3. TOPIRAMATE [Suspect]
     Indication: EPILEPSY
     Dosage: 200 MG/DAY
     Route: 065
  4. TOPIRAMATE [Suspect]
     Dosage: 400 MG/DAY
     Route: 065

REACTIONS (3)
  - COMPLEX PARTIAL SEIZURES [None]
  - DRUG EXPOSURE DURING PREGNANCY [None]
  - NORMAL NEWBORN [None]
